FAERS Safety Report 5537945-5 (Version None)
Quarter: 2007Q4

REPORT INFORMATION
  Report Type: 
  Country: None (occurrence: None)
  Receive Date: 20071120
  Receipt Date: 20070817
  Transmission Date: 20080405
  Serious: No
  Sender: FDA-Public Use
  Company Number: WAES 0708USA03440

PATIENT
  Age: 69 Year
  Sex: Male
  Weight: 102.5129 kg

DRUGS (18)
  1. JANUVIA [Suspect]
     Indication: DIABETES MELLITUS
     Dosage: 100 MG/DAILY/PO
     Route: 048
     Dates: start: 20070301, end: 20070701
  2. ALLEGRA D 24 HOUR [Concomitant]
  3. AMARYL [Concomitant]
  4. GLUCOPHAGE [Concomitant]
  5. HC TUSSIVE [Concomitant]
  6. LIPITOR [Concomitant]
  7. LODINE [Concomitant]
  8. MAXZIDE [Concomitant]
  9. PLAVIX [Concomitant]
  10. PREVACID [Concomitant]
  11. REQUIP [Concomitant]
  12. FELODIPINE [Concomitant]
  13. LORAZEPAM [Concomitant]
  14. METOPROLOL [Concomitant]
  15. NITROGLYCERIN [Concomitant]
  16. NONSTEROIDAL ANTI-INFLAMMATORY [Concomitant]
  17. TERAZOSIN HYDROCHLORIDE [Concomitant]
  18. TRAMADOL HCL [Concomitant]

REACTIONS (1)
  - OEDEMA PERIPHERAL [None]
